FAERS Safety Report 8455550-8 (Version None)
Quarter: 2012Q2

REPORT INFORMATION
  Report Type: 
  Country: None (occurrence: None)
  Receive Date: 20120621
  Receipt Date: 20120619
  Transmission Date: 20120825
  Serious: Yes (Other)
  Sender: FDA-Public Use
  Company Number: TW-PFIZER INC-2012147616

PATIENT
  Age: 68 Year
  Sex: Female

DRUGS (4)
  1. VITAMIN D [Concomitant]
     Indication: VITAMIN SUPPLEMENTATION
     Dosage: UNK
  2. ACETAMINOPHEN [Concomitant]
     Indication: PAIN
     Dosage: 1 TABLET AS NEEDED
     Route: 048
  3. XANAX [Suspect]
     Indication: BIPOLAR I DISORDER
     Dosage: 0.75 - 1MG THREE TIMES PER DAY
     Route: 048
  4. ZOLPIDEM TARTRATE [Concomitant]
     Indication: INSOMNIA
     Dosage: 1 TABLET BEFORE BED

REACTIONS (3)
  - MALAISE [None]
  - DRUG DEPENDENCE [None]
  - SUICIDAL IDEATION [None]
